FAERS Safety Report 18818463 (Version 1)
Quarter: 2021Q1

REPORT INFORMATION
  Report Type: Report from Study
  Country: CN (occurrence: CN)
  Receive Date: 20210201
  Receipt Date: 20210201
  Transmission Date: 20210419
  Serious: Yes (Hospitalization)
  Sender: FDA-Public Use
  Company Number: CN-ELI_LILLY_AND_COMPANY-CN202001005438

PATIENT
  Age: 73 Year
  Sex: Male
  Weight: 90 kg

DRUGS (3)
  1. GLUCOBAY [Concomitant]
     Active Substance: ACARBOSE
     Indication: DIABETES MELLITUS
     Dosage: 1 DOSAGE FORM, EACH MORNING
     Route: 048
     Dates: start: 2018
  2. HUMULIN NOS [Suspect]
     Active Substance: INSULIN HUMAN
     Indication: DIABETES MELLITUS
     Dosage: 20 U, DAILY (NOON)
     Route: 058
     Dates: start: 2011
  3. HUMULIN NOS [Suspect]
     Active Substance: INSULIN HUMAN
     Dosage: 22 U, DAILY (NIGHT)
     Route: 058
     Dates: start: 2011

REACTIONS (1)
  - Oedema [Recovering/Resolving]
